FAERS Safety Report 19442826 (Version 2)
Quarter: 2021Q3

REPORT INFORMATION
  Report Type: Spontaneous
  Country: IL (occurrence: IL)
  Receive Date: 20210621
  Receipt Date: 20210716
  Transmission Date: 20211014
  Serious: Yes (Death)
  Sender: FDA-Public Use
  Company Number: IL-ABBVIE-21K-082-3959688-00

PATIENT
  Age: 75 Year
  Sex: Female

DRUGS (1)
  1. VENCLEXTA [Suspect]
     Active Substance: VENETOCLAX
     Indication: PLASMA CELL MYELOMA
     Route: 048
     Dates: start: 20201025, end: 20210207

REACTIONS (1)
  - Plasma cell myeloma [Fatal]
